FAERS Safety Report 14742629 (Version 3)
Quarter: 2018Q2

REPORT INFORMATION
  Report Type: Spontaneous
  Country: US (occurrence: US)
  Receive Date: 20180410
  Receipt Date: 20180501
  Transmission Date: 20180711
  Serious: Yes (Other)
  Sender: FDA-Public Use
  Company Number: US-NEUROCRINE BIOSCIENCES INC.-2018NBI00980

PATIENT
  Sex: Female

DRUGS (21)
  1. LASIX [Concomitant]
     Active Substance: FUROSEMIDE
  2. CLOZARIL [Concomitant]
     Active Substance: CLOZAPINE
     Dosage: 50 MG IN THE MORNING IN 300 MG AT NIGHT
  3. CALCIUM [Concomitant]
     Active Substance: CALCIUM
  4. POTASSIUM [Concomitant]
     Active Substance: POTASSIUM
  5. BENZTROPINE. [Concomitant]
     Active Substance: BENZTROPINE
  6. BENADRYL [Concomitant]
     Active Substance: DIPHENHYDRAMINE HYDROCHLORIDE
  7. IBANDRONATE [Concomitant]
     Active Substance: IBANDRONATE SODIUM
  8. LACTULOSE. [Concomitant]
     Active Substance: LACTULOSE
     Dosage: 10G FOR15 ML
  9. ASPIRIN. [Concomitant]
     Active Substance: ASPIRIN
  10. SIMVASTATIN. [Concomitant]
     Active Substance: SIMVASTATIN
  11. DIGOXIN. [Concomitant]
     Active Substance: DIGOXIN
     Indication: HEART RATE IRREGULAR
  12. INGREZZA [Suspect]
     Active Substance: VALBENAZINE
     Indication: TARDIVE DYSKINESIA
     Route: 048
     Dates: start: 201706, end: 2017
  13. INGREZZA [Suspect]
     Active Substance: VALBENAZINE
     Route: 048
     Dates: start: 2017, end: 201803
  14. METOPROLOL TARTRATE. [Concomitant]
     Active Substance: METOPROLOL TARTRATE
  15. FISH OIL [Concomitant]
     Active Substance: FISH OIL
  16. SENNA [Concomitant]
     Active Substance: SENNA LEAF\SENNOSIDES\SENNOSIDES A AND B
  17. VITAMIN E [Concomitant]
     Active Substance: .ALPHA.-TOCOPHEROL
  18. INGREZZA [Suspect]
     Active Substance: VALBENAZINE
     Route: 048
     Dates: start: 2018
  19. HCTZ [Concomitant]
     Active Substance: HYDROCHLOROTHIAZIDE
     Dosage: 37.5/25 MG
     Dates: start: 200808
  20. LASIX [Concomitant]
     Active Substance: FUROSEMIDE
     Dates: start: 201801
  21. GEMFIBROZIL. [Concomitant]
     Active Substance: GEMFIBROZIL

REACTIONS (4)
  - Pulmonary hypertension [Unknown]
  - Diastolic dysfunction [Unknown]
  - Weight increased [Unknown]
  - Cardiac failure [Unknown]

NARRATIVE: CASE EVENT DATE: 2017
